FAERS Safety Report 8207174-5 (Version None)
Quarter: 2012Q1

REPORT INFORMATION
  Report Type: 
  Country: None (occurrence: None)
  Receive Date: 20120314
  Receipt Date: 20120312
  Transmission Date: 20120608
  Serious: Yes (Other)
  Sender: FDA-Public Use
  Company Number: US-PFIZER INC-2012065859

PATIENT
  Sex: Male
  Weight: 90.703 kg

DRUGS (3)
  1. LISINOPRIL [Concomitant]
     Dosage: 10 MG, DAILY
  2. LIPITOR [Suspect]
     Indication: BLOOD CHOLESTEROL INCREASED
     Dosage: 40 MG, 2X/DAY
  3. LANTUS [Concomitant]
     Indication: BLOOD GLUCOSE INCREASED
     Dosage: 60 IU, DAILY

REACTIONS (1)
  - AMNESIA [None]
